FAERS Safety Report 10307013 (Version 2)
Quarter: 2014Q3

REPORT INFORMATION
  Report Type: Report from Study
  Country: BR (occurrence: BR)
  Receive Date: 20140715
  Receipt Date: 20140808
  Transmission Date: 20150326
  Serious: Yes (Hospitalization, Other)
  Sender: FDA-Public Use
  Company Number: PHHY2014BR084123

PATIENT
  Sex: Male
  Weight: 92 kg

DRUGS (2)
  1. ONBREZ [Suspect]
     Active Substance: INDACATEROL
     Dosage: UNK UKN, UNK
     Route: 055
  2. ONBREZ [Suspect]
     Active Substance: INDACATEROL
     Indication: LUNG DISORDER
     Dosage: 1 DF, IN THE MORNING
     Route: 055

REACTIONS (2)
  - Pleural effusion [Recovered/Resolved]
  - Pericardial effusion [Recovered/Resolved]
